FAERS Safety Report 7378795-7 (Version None)
Quarter: 2011Q1

REPORT INFORMATION
  Report Type: 
  Country: None (occurrence: None)
  Receive Date: 20110328
  Receipt Date: 20110311
  Transmission Date: 20110831
  Serious: Yes (Hospitalization)
  Sender: FDA-Public Use
  Company Number: PHHY2010BR54431

PATIENT
  Sex: Female

DRUGS (4)
  1. URBANYL [Concomitant]
     Dosage: 10 MG,
  2. AMATO [Concomitant]
     Indication: EPILEPSY
     Dosage: TWO TABLETS DAILY
     Route: 048
  3. GARDENAL [Concomitant]
     Dosage: 100 MG, UNK
  4. COMBIPATCH [Suspect]
     Indication: AMENORRHOEA
     Route: 062

REACTIONS (1)
  - EPILEPSY [None]
